FAERS Safety Report 7767075-3 (Version None)
Quarter: 2011Q3

REPORT INFORMATION
  Report Type: 
  Country: None (occurrence: None)
  Receive Date: 20110922
  Receipt Date: 20110531
  Transmission Date: 20111222
  Serious: No
  Sender: FDA-Public Use
  Company Number: US-ASTRAZENECA-2011SE33688

PATIENT
  Age: 57 Year
  Sex: Male

DRUGS (2)
  1. DEPAKOTE [Concomitant]
  2. SEROQUEL [Suspect]
     Indication: BIPOLAR DISORDER
     Route: 048

REACTIONS (3)
  - FEELING HOT [None]
  - RASH [None]
  - ERYTHEMA [None]
